FAERS Safety Report 16983140 (Version 1)
Quarter: 2019Q4

REPORT INFORMATION
  Report Type: Spontaneous
  Country: US (occurrence: US)
  Receive Date: 20191030
  Receipt Date: 20191030
  Transmission Date: 20200122
  Serious: Yes (Disabling)
  Sender: FDA-Public Use
  Company Number: None

PATIENT
  Age: 79 Year
  Sex: Male
  Weight: 54 kg

DRUGS (1)
  1. HYDRALAZINE [Suspect]
     Active Substance: HYDRALAZINE HYDROCHLORIDE
     Indication: HYPERTENSION

REACTIONS (11)
  - Feeling cold [None]
  - Full blood count decreased [None]
  - Bedridden [None]
  - Fatigue [None]
  - Gait inability [None]
  - Incontinence [None]
  - Pneumonia [None]
  - Impaired self-care [None]
  - Lupus-like syndrome [None]
  - Confusional state [None]
  - Upper respiratory tract infection [None]

NARRATIVE: CASE EVENT DATE: 20191011
